FAERS Safety Report 13908328 (Version 1)
Quarter: 2017Q3

REPORT INFORMATION
  Report Type: Report from Study
  Country: CA (occurrence: CA)
  Receive Date: 20170826
  Receipt Date: 20170826
  Transmission Date: 20171127
  Serious: Yes (Other)
  Sender: FDA-Public Use
  Company Number: CA-AMGEN-CANSL2017127025

PATIENT
  Age: 75 Year
  Sex: Male
  Weight: 70.3 kg

DRUGS (1)
  1. REPATHA [Suspect]
     Active Substance: EVOLOCUMAB
     Indication: PRODUCT USED FOR UNKNOWN INDICATION
     Dosage: 140 MG/ML, UNK
     Route: 058
     Dates: start: 20170629

REACTIONS (4)
  - Confusional state [Not Recovered/Not Resolved]
  - Neck pain [Unknown]
  - Memory impairment [Unknown]
  - Impaired reasoning [Unknown]

NARRATIVE: CASE EVENT DATE: 20170629
